FAERS Safety Report 14163545 (Version 8)
Quarter: 2019Q2

REPORT INFORMATION
  Report Type: Report from Study
  Country: US (occurrence: US)
  Receive Date: 20171106
  Receipt Date: 20190515
  Transmission Date: 20190711
  Serious: Yes (Hospitalization, Other)
  Sender: FDA-Public Use
  Company Number: US-ACTELION-A-NJ2017-161963

PATIENT
  Age: 55 Year
  Sex: Female
  Weight: 72.56 kg

DRUGS (6)
  1. BUMETANIDE. [Concomitant]
     Active Substance: BUMETANIDE
     Dosage: UNK
     Dates: start: 20170308
  2. METOLAZONE. [Concomitant]
     Active Substance: METOLAZONE
  3. UPTRAVI [Suspect]
     Active Substance: SELEXIPAG
     Indication: PULMONARY ARTERIAL HYPERTENSION
     Dosage: 400 MCG, BID
     Route: 048
     Dates: start: 20180223
  4. POTASSIUM CHLORIDE. [Concomitant]
     Active Substance: POTASSIUM CHLORIDE
     Dosage: UNK
     Dates: start: 20170124
  5. OPSUMIT [Suspect]
     Active Substance: MACITENTAN
     Indication: PULMONARY ARTERIAL HYPERTENSION
     Dosage: 10 MG, QD
     Route: 048
     Dates: start: 20170830
  6. UPTRAVI [Suspect]
     Active Substance: SELEXIPAG
     Dosage: 200 MCG, BID
     Route: 048
     Dates: start: 20170129

REACTIONS (17)
  - Transient ischaemic attack [Recovered/Resolved]
  - Vomiting [Unknown]
  - Diabetes mellitus [Not Recovered/Not Resolved]
  - Hemiparesis [Recovered/Resolved]
  - Diarrhoea [Unknown]
  - Facial paralysis [Recovered/Resolved]
  - Product dose omission [Unknown]
  - Nausea [Unknown]
  - Treatment noncompliance [Unknown]
  - Myalgia [Unknown]
  - Atrial fibrillation [Recovered/Resolved]
  - Gastroenteritis viral [Unknown]
  - Dyspnoea [Not Recovered/Not Resolved]
  - Muscular weakness [Recovered/Resolved]
  - Fluid overload [Unknown]
  - Dizziness [Unknown]
  - Pain in jaw [Unknown]

NARRATIVE: CASE EVENT DATE: 20171024
